FAERS Safety Report 10039648 (Version 1)
Quarter: 2014Q1

REPORT INFORMATION
  Report Type: Report from Study
  Country: CA (occurrence: CA)
  Receive Date: 20140326
  Receipt Date: 20140326
  Transmission Date: 20141002
  Serious: Yes (Hospitalization)
  Sender: FDA-Public Use
  Company Number: CA-JNJFOC-20140311202

PATIENT
  Sex: Female
  Weight: 53.52 kg

DRUGS (2)
  1. REMICADE [Suspect]
     Indication: CROHN^S DISEASE
     Dosage: 4 TH INFUSION
     Route: 042
     Dates: start: 20131126
  2. REMICADE [Suspect]
     Indication: CROHN^S DISEASE
     Dosage: 4 TH INFUSION
     Route: 042
     Dates: start: 20140317

REACTIONS (3)
  - Iritis [Not Recovered/Not Resolved]
  - Abdominal pain [Not Recovered/Not Resolved]
  - Respiratory disorder [Not Recovered/Not Resolved]
